FAERS Safety Report 6267877-9 (Version None)
Quarter: 2009Q3

REPORT INFORMATION
  Report Type: 
  Country: None (occurrence: None)
  Receive Date: 20090714
  Receipt Date: 20080723
  Transmission Date: 20100115
  Serious: Yes (Hospitalization)
  Sender: FDA-Public Use
  Company Number: BE-AVENTIS-200816605GDDC

PATIENT
  Age: 53 Year
  Sex: Male
  Weight: 78 kg

DRUGS (7)
  1. LANTUS [Suspect]
     Indication: DIABETES MELLITUS
     Route: 058
     Dates: start: 20061013
  2. INSULIN LISPRO [Suspect]
     Indication: DIABETES MELLITUS
     Route: 058
     Dates: start: 20061108
  3. AUTOPEN INSULIN INJECTION PEN [Suspect]
  4. COVERSYL                           /00790701/ [Concomitant]
     Indication: MICROALBUMINURIA
     Dates: start: 20061013
  5. SIMVASTATIN [Concomitant]
     Dates: start: 20060924
  6. NEBIVOLOL [Concomitant]
     Indication: CARDIOMYOPATHY
     Dates: start: 20061115, end: 20061205
  7. ASAFLOW [Concomitant]
     Indication: CARDIOMYOPATHY
     Dates: start: 20061115

REACTIONS (1)
  - CARDIAC DISORDER [None]
